FAERS Safety Report 11414938 (Version 1)
Quarter: 2015Q3

REPORT INFORMATION
  Report Type: Spontaneous
  Country: US (occurrence: None)
  Receive Date: 20150824
  Receipt Date: 20150824
  Transmission Date: 20151125
  Serious: Yes (Death)
  Sender: FDA-Public Use
  Company Number: None

PATIENT
  Age: 64 Year
  Sex: Female

DRUGS (1)
  1. LEVOFLOXACIN 750MG [Suspect]
     Active Substance: LEVOFLOXACIN
     Route: 048
     Dates: start: 20150730

REACTIONS (2)
  - Foaming at mouth [None]
  - Unresponsive to stimuli [None]

NARRATIVE: CASE EVENT DATE: 20150730
